FAERS Safety Report 5070890-0 (Version None)
Quarter: 2006Q3

REPORT INFORMATION
  Report Type: 
  Country: None (occurrence: None)
  Receive Date: 20060714
  Receipt Date: 20060421
  Transmission Date: 20061208
  Serious: No
  Sender: FDA-Public Use
  Company Number: 2006SP001788

PATIENT
  Age: 46 Year
  Sex: Female
  Weight: 63.5036 kg

DRUGS (3)
  1. LUNESTA [Suspect]
     Indication: INSOMNIA
     Dosage: 3 MG;PRN;ORAL
     Route: 048
     Dates: start: 20050101, end: 20060419
  2. SIMVASTATIN [Concomitant]
  3. ALTACE [Concomitant]

REACTIONS (4)
  - AGITATION [None]
  - AMNESIA [None]
  - ANGER [None]
  - DYSGEUSIA [None]
